FAERS Safety Report 24638417 (Version 1)
Quarter: 2024Q4

REPORT INFORMATION
  Report Type: Spontaneous
  Country: US (occurrence: None)
  Receive Date: 20241119
  Receipt Date: 20241119
  Transmission Date: 20250114
  Serious: No
  Sender: Public
  Company Number: None

PATIENT
  Age: 75 Year
  Sex: Male
  Weight: 109 kg

DRUGS (1)
  1. APIXABAN [Suspect]
     Active Substance: APIXABAN
     Indication: Atrial fibrillation
     Dosage: FREQUENCY : TWICE A DAY;?
     Route: 048
     Dates: start: 20240910, end: 20240919

REACTIONS (5)
  - Gastrointestinal haemorrhage [None]
  - Gastritis [None]
  - Portal hypertensive gastropathy [None]
  - Diverticulum intestinal [None]
  - Haemorrhoids [None]

NARRATIVE: CASE EVENT DATE: 20240919
